FAERS Safety Report 5280328-6 (Version None)
Quarter: 2007Q1

REPORT INFORMATION
  Report Type: 
  Country: None (occurrence: None)
  Receive Date: 20070329
  Receipt Date: 20070322
  Transmission Date: 20070707
  Serious: Yes (Death, Life-Threatening, Hospitalization, Disabling, Other)
  Sender: FDA-Public Use
  Company Number: IT-ELI_LILLY_AND_COMPANY-IT200701003619

PATIENT
  Age: 34 Year
  Sex: Male
  Weight: 71.5 kg

DRUGS (6)
  1. ZYPREXA [Suspect]
     Indication: SCHIZOPHRENIA, PARANOID TYPE
     Dosage: 10 MG, 2/D
     Dates: start: 20061204
  2. HALOPERIDOL [Concomitant]
     Indication: SCHIZOPHRENIA, PARANOID TYPE
     Dosage: 2 MG, 3/D
     Dates: start: 20061204, end: 20061218
  3. BIPERIDEN LACTATE [Concomitant]
     Indication: SCHIZOPHRENIA, PARANOID TYPE
     Dosage: 4 MG, 2/D
     Dates: start: 20061204
  4. TEGRETOL [Concomitant]
     Indication: SCHIZOPHRENIA, PARANOID TYPE
     Dosage: 600 MG, OTHER
     Dates: start: 20061204, end: 20061218
  5. DELORAZEPAM [Concomitant]
     Indication: SCHIZOPHRENIA, PARANOID TYPE
     Dosage: 3 MG, DAILY (1/D)
     Dates: start: 20061204, end: 20061218
  6. FELISON [Concomitant]
     Indication: SCHIZOPHRENIA, PARANOID TYPE
     Dosage: 30 MG, DAILY (1/D)
     Dates: start: 20061204, end: 20061218

REACTIONS (1)
  - CEREBRAL HAEMORRHAGE [None]
